FAERS Safety Report 5897002-5 (Version None)
Quarter: 2008Q3

REPORT INFORMATION
  Report Type: 
  Country: None (occurrence: None)
  Receive Date: 20080924
  Receipt Date: 20080213
  Transmission Date: 20090109
  Serious: Yes (Hospitalization)
  Sender: FDA-Public Use
  Company Number: US-ASTRAZENECA-2008UW02985

PATIENT
  Age: 5 Year
  Sex: Male
  Weight: 29.5 kg

DRUGS (4)
  1. SEROQUEL [Suspect]
     Indication: BIPOLAR I DISORDER
     Route: 048
  2. SEROQUEL [Suspect]
     Route: 048
     Dates: start: 20080204, end: 20080207
  3. VYVANSE [Concomitant]
     Dates: start: 20080208
  4. DEPAKOTE [Concomitant]

REACTIONS (1)
  - EXTRAPYRAMIDAL DISORDER [None]
